FAERS Safety Report 5748783-2 (Version None)
Quarter: 2008Q2

REPORT INFORMATION
  Report Type: 
  Country: None (occurrence: None)
  Receive Date: 20080521
  Receipt Date: 20080515
  Transmission Date: 20081010
  Serious: Yes (Life-Threatening, Hospitalization, Disabling)
  Sender: FDA-Public Use
  Company Number: 230003E07DEU

PATIENT
  Age: 38 Year
  Sex: Female
  Weight: 65 kg

DRUGS (14)
  1. REBIF [Suspect]
     Indication: MULTIPLE SCLEROSIS
     Dosage: 44 MCG, 3 IN 1 WEEKS, SUBCUTANEOUS
     Route: 058
     Dates: start: 20070806, end: 20071123
  2. IBUPROFEN [Suspect]
     Indication: INFLUENZA LIKE ILLNESS
     Dosage: 400 MG, AS REQUIRED, ORAL
     Route: 048
     Dates: start: 20070806, end: 20071123
  3. CERTOSTAT [Concomitant]
  4. COUGH AND COLD PREPARATIONS [Concomitant]
  5. OMEPRAZOLE [Concomitant]
  6. METOCLOPRAMIDE /00041901/ [Concomitant]
  7. IBUPROFEN [Concomitant]
  8. DIAZEPAM [Concomitant]
  9. SALUTEC [Concomitant]
  10. CLARITHROMYCIN [Concomitant]
  11. HEDERA HELIX [Concomitant]
  12. ACETAMINOPHEN [Concomitant]
  13. LISINOPRIL /00894001/ [Concomitant]
  14. A.P.C. /00005201/ [Concomitant]

REACTIONS (10)
  - ANAEMIA [None]
  - BLOOD LACTATE DEHYDROGENASE INCREASED [None]
  - BLOOD POTASSIUM INCREASED [None]
  - DRUG INEFFECTIVE [None]
  - HAEMODIALYSIS [None]
  - HAEMOLYTIC URAEMIC SYNDROME [None]
  - HYPERTENSION [None]
  - NASOPHARYNGITIS [None]
  - RENAL FAILURE ACUTE [None]
  - THROMBOCYTOPENIA [None]
